FAERS Safety Report 17721451 (Version 1)
Quarter: 2020Q2

REPORT INFORMATION
  Report Type: Spontaneous
  Country: US (occurrence: US)
  Receive Date: 20200429
  Receipt Date: 20200429
  Transmission Date: 20200714
  Serious: Yes (Hospitalization, Other)
  Sender: FDA-Public Use
  Company Number: US-PERRIGO-20US005630

PATIENT
  Age: 61 Year
  Sex: Male

DRUGS (5)
  1. OMEPRAZOLE. [Suspect]
     Active Substance: OMEPRAZOLE
     Indication: GASTROOESOPHAGEAL REFLUX DISEASE
     Dosage: 20 MG, QD
     Route: 048
     Dates: start: 20160809
  2. PRILOSEC [Suspect]
     Active Substance: OMEPRAZOLE MAGNESIUM
     Indication: GASTROOESOPHAGEAL REFLUX DISEASE
     Dosage: 40 MG, QD (DR)
     Route: 048
     Dates: start: 19960819, end: 20141007
  3. PREVACID 24 HR [Suspect]
     Active Substance: LANSOPRAZOLE
     Indication: GASTROOESOPHAGEAL REFLUX DISEASE
     Dosage: UNKNOWN, UNKNOWN
     Route: 048
     Dates: start: 2010
  4. PREVACID [Suspect]
     Active Substance: LANSOPRAZOLE
     Indication: GASTROOESOPHAGEAL REFLUX DISEASE
     Dosage: 30 MG, QD
     Route: 048
     Dates: start: 1996, end: 2009
  5. PRILOSEC [Suspect]
     Active Substance: OMEPRAZOLE MAGNESIUM
     Dosage: 20 MG, QD PRN (OTC)
     Route: 065
     Dates: start: 2010

REACTIONS (15)
  - End stage renal disease [Not Recovered/Not Resolved]
  - Nephrogenic anaemia [Unknown]
  - Hyperparathyroidism secondary [Unknown]
  - Ureteric stenosis [Unknown]
  - Acute kidney injury [Not Recovered/Not Resolved]
  - Hydronephrosis [Unknown]
  - Azotaemia [Unknown]
  - Pollakiuria [Unknown]
  - Urinary tract obstruction [Unknown]
  - Urinary retention [Unknown]
  - Chronic kidney disease [Not Recovered/Not Resolved]
  - Neurogenic bladder [Unknown]
  - Diabetic nephropathy [Not Recovered/Not Resolved]
  - Proteinuria [Unknown]
  - Nocturia [Unknown]

NARRATIVE: CASE EVENT DATE: 20100917
